FAERS Safety Report 9129865 (Version 4)
Quarter: 2015Q3

REPORT INFORMATION
  Report Type: Spontaneous
  Country: CA (occurrence: CA)
  Receive Date: 20130125
  Receipt Date: 20150723
  Transmission Date: 20151125
  Serious: Yes (Death, Other)
  Sender: FDA-Public Use
  Company Number: CA-PFIZER INC-2013031807

PATIENT
  Age: 31 Year
  Sex: Female

DRUGS (7)
  1. METHADONE [Concomitant]
     Active Substance: METHADONE HYDROCHLORIDE
     Indication: DRUG DEPENDENCE
     Dosage: 100 IN THE MORNING, 40MG AT NIGHT
  2. CARBAMAZEPINE. [Concomitant]
     Active Substance: CARBAMAZEPINE
     Indication: EPILEPSY
     Dosage: 600 MG, 1X/DAY
  3. METHAMPHETAMINE [Suspect]
     Active Substance: METHAMPHETAMINE
  4. PANTOPRAZOLE [Concomitant]
     Active Substance: PANTOPRAZOLE SODIUM
     Indication: ABDOMINAL DISCOMFORT
     Dosage: 40 MG, UNK
  5. LYRICA [Suspect]
     Active Substance: PREGABALIN
     Indication: ARTHRALGIA
     Dosage: 150 MG, 2X/DAY
  6. OLANZAPINE. [Concomitant]
     Active Substance: OLANZAPINE
     Indication: PERSONALITY DISORDER
     Dosage: 20 MG, UNK
  7. TRAZODONE [Concomitant]
     Active Substance: TRAZODONE HYDROCHLORIDE
     Indication: SLEEP DISORDER
     Dosage: 100 MG, UNK

REACTIONS (4)
  - Product use issue [Fatal]
  - Overdose [Fatal]
  - Drug abuser [Unknown]
  - Epilepsy [Fatal]
